FAERS Safety Report 6696119-5 (Version None)
Quarter: 2010Q2

REPORT INFORMATION
  Report Type: 
  Country: None (occurrence: None)
  Receive Date: 20100426
  Receipt Date: 20100414
  Transmission Date: 20101027
  Serious: Yes (Hospitalization, Other)
  Sender: FDA-Public Use
  Company Number: KR-BAYER-200923058GPV

PATIENT
  Age: 71 Year
  Sex: Male
  Weight: 65 kg

DRUGS (32)
  1. NEXAVAR [Suspect]
     Indication: HEPATIC NEOPLASM MALIGNANT
     Route: 048
     Dates: start: 20090421, end: 20090505
  2. NEXAVAR [Suspect]
     Route: 048
     Dates: start: 20090506, end: 20090520
  3. NEXAVAR [Suspect]
     Route: 048
     Dates: start: 20090701, end: 20090727
  4. SILYMARIN [Concomitant]
     Indication: LIVER DISORDER
     Route: 048
     Dates: start: 20020711, end: 20091007
  5. URSODEOXYCHOLIC ACID [Concomitant]
     Indication: CHOLELITHIASIS
     Route: 048
     Dates: start: 20020711, end: 20091007
  6. AROMIN [Concomitant]
     Indication: PROPHYLAXIS
     Route: 048
     Dates: start: 20020711, end: 20091007
  7. ATENOLOL [Concomitant]
     Indication: HYPERTENSION
     Route: 048
     Dates: start: 20070305, end: 20091007
  8. LAMIVUDINE [Concomitant]
     Indication: HEPATITIS B
     Route: 048
     Dates: start: 20090506
  9. LAMIVUDINE [Concomitant]
     Route: 048
     Dates: start: 20090606, end: 20090727
  10. AZELASTINE HCL [Concomitant]
     Indication: ANTIALLERGIC THERAPY
     Route: 048
     Dates: start: 20090507, end: 20090511
  11. LEVODROPROZINE [Concomitant]
     Indication: ANTITUSSIVE THERAPY
     Route: 048
     Dates: start: 20090507, end: 20090511
  12. BESZYME [Concomitant]
     Indication: DYSPEPSIA
     Route: 048
     Dates: start: 20090521, end: 20090528
  13. LOPERAMIDE OXIDE [Concomitant]
     Indication: DIARRHOEA
     Route: 048
     Dates: start: 20090521, end: 20090527
  14. MOSAPRIDE [Concomitant]
     Indication: ANTIEMETIC SUPPORTIVE CARE
     Route: 048
     Dates: start: 20090521, end: 20090527
  15. METFORMIN [Concomitant]
     Indication: DIABETES MELLITUS
     Route: 048
     Dates: start: 20090606, end: 20090617
  16. MAGNESIUM OXIDE [Concomitant]
     Indication: ABNORMAL FAECES
     Route: 048
     Dates: start: 20090728, end: 20090821
  17. CETAMADOL [Concomitant]
     Indication: ANALGESIC THERAPY
     Route: 048
     Dates: start: 20090804, end: 20090813
  18. FUROSEMIDE [Concomitant]
     Indication: DIURETIC THERAPY
     Route: 048
     Dates: start: 20090813, end: 20090816
  19. SPIRONOLACTONE [Concomitant]
     Indication: DIURETIC THERAPY
     Route: 048
     Dates: start: 20090813, end: 20090815
  20. LACTULOSE [Concomitant]
     Route: 048
     Dates: start: 20090818, end: 20090825
  21. MEPERIDINE HCL [Concomitant]
     Indication: ANALGESIC THERAPY
     Dosage: 1 AMPLE
     Route: 042
     Dates: start: 20090813, end: 20090825
  22. OXYCODONE [Concomitant]
     Indication: ANALGESIC THERAPY
     Route: 048
     Dates: start: 20090815, end: 20090816
  23. MORPHINE HCL ELIXIR [Concomitant]
     Indication: ANALGESIC THERAPY
     Dosage: 1 AMPLE
     Route: 042
     Dates: start: 20090810, end: 20090811
  24. KETOLOLAC [Concomitant]
     Indication: ANALGESIC THERAPY
     Dosage: 3 AMPLE
     Route: 042
     Dates: start: 20090810, end: 20090811
  25. OXOLAMINE [Concomitant]
     Route: 048
     Dates: start: 20090728, end: 20090803
  26. FENTANYL [Concomitant]
     Indication: PAIN
     Dosage: AS USED: 12 ?G/H
     Route: 062
     Dates: start: 20090708, end: 20090826
  27. ACETYL L-CARNITINE [Concomitant]
     Route: 048
     Dates: start: 20090612, end: 20090614
  28. CHLORPHENIRAMINE MALEATE [Concomitant]
     Route: 042
     Dates: start: 20090604, end: 20090604
  29. ECABET [Concomitant]
     Indication: GASTROINTESTINAL DISORDER
     Route: 048
     Dates: start: 20090612, end: 20090614
  30. ESCITALOPRAM [Concomitant]
     Route: 048
     Dates: start: 20090612, end: 20090614
  31. MEDILAC [Concomitant]
     Indication: DIARRHOEA
     Dosage: DS
     Route: 048
     Dates: start: 20090612, end: 20090614
  32. NICARDIPINE HYDROCHLORIDE [Concomitant]
     Indication: HYPERTENSION
     Route: 048
     Dates: start: 20090604, end: 20090610

REACTIONS (5)
  - CEREBRAL HAEMORRHAGE [None]
  - DIPLOPIA [None]
  - METASTASES TO CENTRAL NERVOUS SYSTEM [None]
  - MUSCULAR WEAKNESS [None]
  - THROMBOCYTOPENIA [None]
